FAERS Safety Report 4639563-X (Version None)
Quarter: 2005Q2

REPORT INFORMATION
  Report Type: 
  Country: None (occurrence: None)
  Receive Date: 20050328
  Receipt Date: 20050210
  Transmission Date: 20051028
  Serious: No
  Sender: FDA-Public Use
  Company Number: USA050290549

PATIENT
  Age: 18 Year
  Sex: Male

DRUGS (4)
  1. STRATTERA [Suspect]
     Indication: AUTISM
     Dosage: 80 MG
  2. CONCERTA [Concomitant]
  3. RISPERDAL [Concomitant]
  4. ZOLOFT [Concomitant]

REACTIONS (3)
  - AGITATION [None]
  - ANXIETY [None]
  - TIC [None]
